FAERS Safety Report 6311785-1 (Version None)
Quarter: 2009Q3

REPORT INFORMATION
  Report Type: 
  Country: None (occurrence: None)
  Receive Date: 20090813
  Receipt Date: 20090813
  Transmission Date: 20100115
  Serious: Yes (Hospitalization)
  Sender: FDA-Public Use
  Company Number: None

PATIENT
  Age: 56 Year
  Sex: Female
  Weight: 113.3993 kg

DRUGS (7)
  1. SUSTIVA [Suspect]
     Indication: HIV TEST POSITIVE
     Dosage: 600 MG ONCE QD PO
     Route: 048
     Dates: start: 20060711
  2. TRUVADA [Suspect]
     Dosage: 200/300 MG ONCE QD PO
     Route: 048
     Dates: start: 20060711
  3. NORVASC [Concomitant]
  4. VASOTEC [Concomitant]
  5. DYAZIDE [Concomitant]
  6. LEXAPRO [Concomitant]
  7. DESTYL [Concomitant]

REACTIONS (3)
  - ASTHMA [None]
  - MALAISE [None]
  - PYREXIA [None]
